FAERS Safety Report 10980296 (Version 2)
Quarter: 2015Q2

REPORT INFORMATION
  Report Type: Spontaneous
  Country: US (occurrence: US)
  Receive Date: 20150402
  Receipt Date: 20150525
  Transmission Date: 20150821
  Serious: No
  Sender: FDA-Public Use
  Company Number: US-JNJFOC-20130917157

PATIENT
  Age: 73 Year
  Sex: Female
  Weight: 68.04 kg

DRUGS (5)
  1. EYE DROPS [Concomitant]
     Active Substance: TETRAHYDROZOLINE HYDROCHLORIDE
     Indication: GLAUCOMA DRUG THERAPY
     Route: 065
  2. IMODIUM MULTI-SYMPTOM RELIEF [Suspect]
     Active Substance: DIMETHICONE\LOPERAMIDE HYDROCHLORIDE
     Indication: DIARRHOEA
     Dosage: ONCE A WEEK
     Route: 048
  3. TETRACYCLINE [Concomitant]
     Active Substance: TETRACYCLINE
     Indication: ACNE
     Dosage: 14 YEARS
     Route: 065
  4. PROBIOTICS [Concomitant]
     Active Substance: PROBIOTICS NOS
     Indication: DYSPEPSIA
     Route: 065
  5. IMODIUM MULTI-SYMPTOM RELIEF [Suspect]
     Active Substance: DIMETHICONE\LOPERAMIDE HYDROCHLORIDE
     Route: 048

REACTIONS (1)
  - Therapeutic response delayed [Unknown]
